APPROVED DRUG PRODUCT: LORATADINE REDIDOSE
Active Ingredient: LORATADINE
Strength: 10MG
Dosage Form/Route: TABLET, ORALLY DISINTEGRATING;ORAL
Application: A077153 | Product #001
Applicant: SUN PHARMACEUTICAL INDUSTRIES LTD
Approved: Apr 11, 2007 | RLD: No | RS: No | Type: OTC